FAERS Safety Report 20654432 (Version 1)
Quarter: 2022Q1

REPORT INFORMATION
  Report Type: Spontaneous
  Country: US (occurrence: US)
  Receive Date: 20220330
  Receipt Date: 20220330
  Transmission Date: 20220424
  Serious: Yes (Other)
  Sender: FDA-Public Use
  Company Number: US-009507513-2203USA009177

PATIENT
  Age: 67 Year

DRUGS (1)
  1. CUBICIN [Suspect]
     Active Substance: DAPTOMYCIN
     Dosage: 5.8 MILLIGRAM/KILOGRAM

REACTIONS (3)
  - Eosinophilic pneumonia [Recovered/Resolved]
  - Pulmonary eosinophilia [Recovered/Resolved]
  - Off label use [Unknown]
